FAERS Safety Report 8089546-5 (Version None)
Quarter: 2012Q1

REPORT INFORMATION
  Report Type: 
  Country: None (occurrence: None)
  Receive Date: 20120128
  Receipt Date: 20110616
  Transmission Date: 20120608
  Serious: No
  Sender: FDA-Public Use
  Company Number: US-ABBOTT-11P-163-0733242-00

PATIENT
  Sex: Female

DRUGS (4)
  1. CLOBEX SPRAY [Concomitant]
     Indication: PSORIASIS
     Route: 061
  2. HUMIRA [Suspect]
     Indication: PSORIASIS
     Route: 058
     Dates: start: 20100428
  3. UNKNOWN BLOOD PRESSURE MEDICATION [Concomitant]
     Indication: HYPERTENSION
  4. CLOBEX [Concomitant]
     Indication: PSORIASIS
     Route: 061

REACTIONS (1)
  - CERVICAL DYSPLASIA [None]
